FAERS Safety Report 8435437-7 (Version None)
Quarter: 2012Q2

REPORT INFORMATION
  Report Type: 
  Country: None (occurrence: None)
  Receive Date: 20120608
  Receipt Date: 20120528
  Transmission Date: 20120825
  Serious: Yes (Other)
  Sender: FDA-Public Use
  Company Number: DSA_57682_2012

PATIENT

DRUGS (5)
  1. PEGINTERFERON ALFA-2B [Suspect]
     Indication: HEPATIC NEOPLASM MALIGNANT
     Dosage: (50 G, WEEKLY SUCUTANEOUS)
     Route: 058
  2. ONDANSETRON HCL [Concomitant]
  3. LEVOLEUCOVORIN CALCIUM [Suspect]
     Indication: HEPATIC NEOPLASM MALIGNANT
     Dosage: (6.25 MG, DAILY INTRA-ARTERIAL)
     Route: 013
  4. FLUOROURACIL [Suspect]
     Indication: HEPATIC NEOPLASM MALIGNANT
     Dosage: (250 MG.DAILY 9NTRA-ARTERIAL)
     Route: 013
  5. CISPLATIN [Suspect]
     Indication: HEPATIC NEOPLASM MALIGNANT
     Dosage: (10 MG, DAILY INTRA-INTERIAL)
     Route: 013

REACTIONS (1)
  - THROMBOCYTOPENIA [None]
